FAERS Safety Report 11112756 (Version 1)
Quarter: 2015Q2

REPORT INFORMATION
  Report Type: Spontaneous
  Country: US (occurrence: US)
  Receive Date: 20150514
  Receipt Date: 20150514
  Transmission Date: 20150821
  Serious: Yes (Other)
  Sender: FDA-Public Use
  Company Number: US-SA-2015SA062907

PATIENT
  Sex: Male

DRUGS (3)
  1. LASIX [Suspect]
     Active Substance: FUROSEMIDE
     Route: 065
  2. TIKOSYN [Interacting]
     Active Substance: DOFETILIDE
     Route: 065
  3. METFORMIN [Interacting]
     Active Substance: METFORMIN HYDROCHLORIDE
     Route: 065

REACTIONS (2)
  - Drug interaction [Unknown]
  - Atrial fibrillation [Unknown]
